FAERS Safety Report 18169205 (Version 1)
Quarter: 2020Q3

REPORT INFORMATION
  Report Type: Spontaneous
  Country: GB (occurrence: GB)
  Receive Date: 20200819
  Receipt Date: 20200819
  Transmission Date: 20201103
  Serious: Yes (Hospitalization, Other)
  Sender: FDA-Public Use
  Company Number: GB-BIOVITRUM-2020GB4318

PATIENT
  Age: 4 Week
  Sex: Female

DRUGS (1)
  1. SYNAGIS [Suspect]
     Active Substance: PALIVIZUMAB
     Indication: PRODUCT USED FOR UNKNOWN INDICATION
     Route: 042

REACTIONS (7)
  - Viral infection [Unknown]
  - Right atrial dilatation [Unknown]
  - Weight gain poor [Unknown]
  - Heart valve incompetence [Unknown]
  - Cardiac failure [Unknown]
  - Cardiac dysfunction [Unknown]
  - Off label use [Unknown]
